FAERS Safety Report 8485253-5 (Version None)
Quarter: 2012Q3

REPORT INFORMATION
  Report Type: 
  Country: None (occurrence: None)
  Receive Date: 20120703
  Receipt Date: 20120621
  Transmission Date: 20120928
  Serious: Yes (Other)
  Sender: FDA-Public Use
  Company Number: JP-VERTEX PHARMACEUTICALS INC.-AE-2012-008855

PATIENT
  Age: 50 Year
  Sex: Female

DRUGS (10)
  1. TELAVIC (TELAPREVIR) [Suspect]
     Route: 048
     Dates: start: 20120504, end: 20120601
  2. PEG-INTRON [Concomitant]
     Route: 058
     Dates: start: 20120502, end: 20120607
  3. TELAVIC (TELAPREVIR) [Suspect]
     Indication: HEPATITIS C
     Route: 048
     Dates: start: 20120502, end: 20120503
  4. ALLOPURINOL [Concomitant]
     Route: 048
  5. RIBAVIRIN [Concomitant]
     Route: 048
     Dates: start: 20120523
  6. PEG-INTRON [Concomitant]
     Route: 048
  7. LEXOTAN [Concomitant]
     Route: 048
  8. RIBAVIRIN [Concomitant]
     Route: 048
     Dates: start: 20120502, end: 20120522
  9. AMOBAN [Concomitant]
     Route: 048
  10. PZC SUGAR COATED TABLETS [Concomitant]
     Route: 048

REACTIONS (3)
  - BLISTER [None]
  - ERYTHEMA [None]
  - RASH [None]
